FAERS Safety Report 4666979-8 (Version None)
Quarter: 2005Q2

REPORT INFORMATION
  Report Type: 
  Country: None (occurrence: None)
  Receive Date: 20050518
  Receipt Date: 20050302
  Transmission Date: 20051028
  Serious: Yes (Other)
  Sender: FDA-Public Use
  Company Number: 2005039370

PATIENT
  Age: 34 Year
  Sex: Female
  Weight: 44.4525 kg

DRUGS (2)
  1. DEPO-PROVERA [Suspect]
     Indication: ILL-DEFINED DISORDER
     Dosage: SEE IMAGE
     Route: 030
     Dates: start: 19950601, end: 19950601
  2. DEPO-PROVERA [Suspect]
     Indication: ILL-DEFINED DISORDER
     Dosage: SEE IMAGE
     Route: 030
     Dates: start: 20041116, end: 20041116

REACTIONS (4)
  - AMENORRHOEA [None]
  - BONE DENSITY DECREASED [None]
  - NIGHT SWEATS [None]
  - WEIGHT DECREASED [None]
